FAERS Safety Report 19327016 (Version 2)
Quarter: 2021Q2

REPORT INFORMATION
  Report Type: Spontaneous
  Country: US (occurrence: US)
  Receive Date: 20210528
  Receipt Date: 20210616
  Transmission Date: 20210717
  Serious: No
  Sender: FDA-Public Use
  Company Number: US-UNITED THERAPEUTICS-UNT-2021-009463

PATIENT
  Sex: Female

DRUGS (3)
  1. TYVASO [Suspect]
     Active Substance: TREPROSTINIL
     Indication: PULMONARY HYPERTENSION
     Dosage: UNK
     Dates: start: 20210510
  2. TYVASO [Suspect]
     Active Substance: TREPROSTINIL
     Indication: PULMONARY ARTERIAL HYPERTENSION
  3. TYVASO [Suspect]
     Active Substance: TREPROSTINIL
     Indication: INTERSTITIAL LUNG DISEASE
     Dosage: 18 ?G, QID
     Dates: end: 2021

REACTIONS (6)
  - Oxygen saturation decreased [Unknown]
  - Chest pain [Unknown]
  - Cough [Unknown]
  - Headache [Unknown]
  - Dyspnoea exertional [Unknown]
  - Pain in jaw [Unknown]

NARRATIVE: CASE EVENT DATE: 2021
